FAERS Safety Report 8063213-6 (Version None)
Quarter: 2012Q1

REPORT INFORMATION
  Report Type: 
  Country: None (occurrence: None)
  Receive Date: 20120123
  Receipt Date: 20120119
  Transmission Date: 20120608
  Serious: Yes (Death, Other)
  Sender: FDA-Public Use
  Company Number: PHHY2012BR005133

PATIENT
  Sex: Female

DRUGS (4)
  1. JANUVIA [Concomitant]
     Indication: DIABETES MELLITUS
     Route: 048
  2. RASILEZ [Suspect]
     Indication: RENAL DISORDER
  3. ARADOIS H [Concomitant]
     Indication: HYPERTENSION
     Route: 048
  4. RASILEZ [Suspect]
     Indication: HYPERTENSION
     Dosage: 300 MG, QD
     Route: 048

REACTIONS (4)
  - DIABETES MELLITUS [None]
  - HYPERTENSION [None]
  - CEREBROVASCULAR ACCIDENT [None]
  - FALL [None]
